FAERS Safety Report 20006532 (Version 1)
Quarter: 2021Q4

REPORT INFORMATION
  Report Type: Spontaneous
  Country: US (occurrence: US)
  Receive Date: 20211028
  Receipt Date: 20211028
  Transmission Date: 20220304
  Serious: Yes (Other)
  Sender: FDA-Public Use
  Company Number: None

PATIENT
  Age: 51 Year
  Weight: 65.25 kg

DRUGS (1)
  1. FIASP [Suspect]
     Active Substance: INSULIN ASPART
     Indication: Type 1 diabetes mellitus
     Dosage: ?          OTHER STRENGTH:UNITS OF INSULIN;QUANTITY:5 UNITS OF INSULIN;OTHER FREQUENCY:AT MEALS UNIT
     Route: 058
     Dates: start: 20211023, end: 20211025

REACTIONS (3)
  - Dizziness [None]
  - Balance disorder [None]
  - Contusion [None]

NARRATIVE: CASE EVENT DATE: 20211025
